FAERS Safety Report 8930207 (Version 2)
Quarter: 2013Q2

REPORT INFORMATION
  Report Type: Spontaneous
  Country: CH (occurrence: CH)
  Receive Date: 20121128
  Receipt Date: 20130423
  Transmission Date: 20140414
  Serious: Yes (Other)
  Sender: FDA-Public Use
  Company Number: CH-ABBOTT-12P-151-1011490-00

PATIENT
  Sex: Female

DRUGS (2)
  1. HUMIRA [Suspect]
     Indication: RHEUMATOID ARTHRITIS
     Dates: start: 2010
  2. METHOTREXATE BIGMAR [Suspect]
     Indication: RHEUMATOID ARTHRITIS
     Dates: start: 2010, end: 201210

REACTIONS (2)
  - Angioedema [Unknown]
  - Alopecia [Recovering/Resolving]
